FAERS Safety Report 6123149-4 (Version None)
Quarter: 2009Q1

REPORT INFORMATION
  Report Type: 
  Country: None (occurrence: None)
  Receive Date: 20090318
  Receipt Date: 20090309
  Transmission Date: 20090719
  Serious: Yes (Other)
  Sender: FDA-Public Use
  Company Number: JP-BAUSCH-2009BL000694

PATIENT
  Age: 30 Year
  Sex: Female
  Weight: 58 kg

DRUGS (13)
  1. ATROPINE [Suspect]
     Indication: BLOOD PRESSURE DECREASED
     Route: 042
     Dates: start: 20081201, end: 20081201
  2. ATROPINE [Suspect]
     Indication: HEART RATE DECREASED
     Route: 042
     Dates: start: 20081201, end: 20081201
  3. EPHEDRINE [Suspect]
     Indication: BLOOD PRESSURE DECREASED
     Route: 042
     Dates: start: 20081201, end: 20081201
  4. EPHEDRINE [Suspect]
     Indication: HEART RATE DECREASED
     Route: 042
     Dates: start: 20081201, end: 20081201
  5. THIOPENTAL SODIUM [Concomitant]
     Route: 042
     Dates: start: 20081201, end: 20081201
  6. VECURONIUM BROMIDE [Concomitant]
     Route: 042
     Dates: start: 20081201, end: 20081201
  7. SEVOFLURANE [Concomitant]
     Dates: start: 20081201, end: 20081201
  8. NITROUS OXIDE [Concomitant]
     Dates: start: 20081201, end: 20081201
  9. VASOPRESSIN INJECTION [Concomitant]
     Dates: start: 20081201, end: 20081201
  10. MIDAZOLAM HCL [Concomitant]
     Route: 030
     Dates: start: 20081201, end: 20081201
  11. OXYGEN [Concomitant]
     Dates: start: 20081201, end: 20081201
  12. MEPIVACAINE HCL [Concomitant]
     Route: 008
     Dates: start: 20081201, end: 20081201
  13. FENTANYL-25 [Concomitant]
     Route: 008
     Dates: start: 20081201, end: 20081201

REACTIONS (2)
  - ELECTROCARDIOGRAM ST SEGMENT DEPRESSION [None]
  - VENTRICULAR EXTRASYSTOLES [None]
